FAERS Safety Report 5870719-4 (Version None)
Quarter: 2008Q3

REPORT INFORMATION
  Report Type: 
  Country: None (occurrence: None)
  Receive Date: 20080904
  Receipt Date: 20080828
  Transmission Date: 20090109
  Serious: Yes (Hospitalization)
  Sender: FDA-Public Use
  Company Number: PHHY2008NL19475

PATIENT
  Sex: Female

DRUGS (1)
  1. DIOVAN HCT [Suspect]
     Indication: HYPERTENSION
     Dosage: 80/12.5 MG PER DAY
     Route: 048
     Dates: start: 20071113

REACTIONS (7)
  - ABDOMINAL PAIN [None]
  - CONJUNCTIVITIS [None]
  - EYE INFLAMMATION [None]
  - FIBROSIS [None]
  - MONARTHRITIS [None]
  - SURGERY [None]
  - VULVITIS [None]
